FAERS Safety Report 20650183 (Version 2)
Quarter: 2022Q2

REPORT INFORMATION
  Report Type: Spontaneous
  Country: US (occurrence: US)
  Receive Date: 20220329
  Receipt Date: 20220609
  Transmission Date: 20220721
  Serious: No
  Sender: FDA-Public Use
  Company Number: US-AVEO ONCOLOGY-2021-AVEO-US003669

PATIENT

DRUGS (5)
  1. FOTIVDA [Suspect]
     Active Substance: TIVOZANIB HYDROCHLORIDE
     Indication: Renal cell carcinoma
     Dosage: 1.34 MG DAILY FOR 21 DAYS, THEN 7 DAYS OFF
     Route: 048
     Dates: start: 20211009
  2. FOTIVDA [Suspect]
     Active Substance: TIVOZANIB HYDROCHLORIDE
     Dosage: 0.89 MG, DAILY FOR 21 DAYS THEN 7 DAYS OFF
     Route: 048
     Dates: start: 20211009
  3. METHADONE [Concomitant]
     Active Substance: METHADONE HYDROCHLORIDE
  4. ONDANSETRON [Concomitant]
     Active Substance: ONDANSETRON
  5. LEVOTHYROXINE [Concomitant]
     Active Substance: LEVOTHYROXINE

REACTIONS (2)
  - Thyroid function test abnormal [Unknown]
  - Productive cough [Unknown]
